FAERS Safety Report 6928223-8 (Version None)
Quarter: 2010Q3

REPORT INFORMATION
  Report Type: 
  Country: None (occurrence: None)
  Receive Date: 20100817
  Receipt Date: 20100805
  Transmission Date: 20110219
  Serious: Yes (Death)
  Sender: FDA-Public Use
  Company Number: JP-ROCHE-714584

PATIENT
  Sex: Male

DRUGS (8)
  1. CAPECITABINE [Suspect]
     Indication: RECTAL CANCER METASTATIC
     Dosage: DRUG: XELODA 300; DOSAGE IS UNCERTAIN
     Route: 048
  2. CAPECITABINE [Suspect]
     Dosage: DRUG: XELODA 300
     Route: 048
     Dates: start: 20100415, end: 20100420
  3. CAPECITABINE [Suspect]
     Route: 048
     Dates: start: 20100423, end: 20100430
  4. CAPECITABINE [Suspect]
     Dosage: DRUG: XELODA 300
     Route: 048
     Dates: start: 20100506, end: 20100514
  5. CAPECITABINE [Suspect]
     Route: 048
     Dates: start: 20100517, end: 20100521
  6. ELPLAT [Concomitant]
     Route: 041
     Dates: start: 20100415, end: 20100415
  7. ELPLAT [Concomitant]
     Route: 041
     Dates: start: 20100506, end: 20100506
  8. VITAMIN B6 [Concomitant]
     Dosage: DRUG: PYRIDOXINE HYDROCHLORIDE, DOSE FORM: PERORAL AGENT.
     Route: 048
     Dates: start: 20100415, end: 20100524

REACTIONS (1)
  - CARDIAC ARREST [None]
